FAERS Safety Report 6032148-2 (Version None)
Quarter: 2009Q1

REPORT INFORMATION
  Report Type: 
  Country: None (occurrence: None)
  Receive Date: 20090107
  Receipt Date: 20081217
  Transmission Date: 20090719
  Serious: Yes (Hospitalization)
  Sender: FDA-Public Use
  Company Number: 200828688GPV

PATIENT
  Age: 58 Year
  Sex: Male

DRUGS (9)
  1. CAMPATH [Suspect]
     Indication: CHRONIC LYMPHOCYTIC LEUKAEMIA
     Dosage: 30 MG SUBCUTANEOUS
     Route: 058
     Dates: start: 20071119, end: 20080327
  2. FLUDARA [Suspect]
     Indication: CHRONIC LYMPHOCYTIC LEUKAEMIA
     Dosage: 80 MG ORAL
     Route: 048
     Dates: start: 20071119, end: 20080327
  3. ENDOXAM (CYCLOPHOSPHAMIDE) [Suspect]
     Indication: CHRONIC LYMPHOCYTIC LEUKAEMIA
     Dosage: 500 MG ORAL
     Route: 048
     Dates: start: 20071119, end: 20080327
  4. VALACYCLOVIR (VALACICLOVIR) [Concomitant]
  5. SULFAMETHOXAZOLE AND TRIMETHOPRIM [Concomitant]
  6. LEUCOVORIN CALCIUM [Concomitant]
  7. AMLODIPINE [Concomitant]
  8. PRAVASTATIN [Concomitant]
  9. ATORVASTATIN CALCIUM [Concomitant]

REACTIONS (3)
  - COUGH [None]
  - HISTIOCYTOSIS HAEMATOPHAGIC [None]
  - PYREXIA [None]
